FAERS Safety Report 9956861 (Version 1)
Quarter: 2014Q1

REPORT INFORMATION
  Report Type: Spontaneous
  Country: US (occurrence: US)
  Receive Date: 20140304
  Receipt Date: 20140304
  Transmission Date: 20141002
  Serious: Yes (Other)
  Sender: FDA-Public Use
  Company Number: US-ABBVIE-13P-163-1099089-00

PATIENT
  Age: 36 Year
  Sex: Female
  Weight: 104.42 kg

DRUGS (1)
  1. HUMIRA [Suspect]
     Indication: RHEUMATOID ARTHRITIS
     Route: 058
     Dates: start: 200910, end: 201305

REACTIONS (3)
  - Lupus-like syndrome [Not Recovered/Not Resolved]
  - Urinary tract infection [Recovered/Resolved]
  - Antinuclear antibody positive [Not Recovered/Not Resolved]
